FAERS Safety Report 25759292 (Version 2)
Quarter: 2025Q3

REPORT INFORMATION
  Report Type: Spontaneous
  Country: US (occurrence: US)
  Receive Date: 20250904
  Receipt Date: 20250921
  Transmission Date: 20251021
  Serious: Yes (Hospitalization)
  Sender: TEVA
  Company Number: US-TEVA-VS-3366671

PATIENT
  Age: 4 Year
  Sex: Female

DRUGS (2)
  1. NAPROXEN [Suspect]
     Active Substance: NAPROXEN
     Indication: Strabismus
     Route: 048
  2. TRIAMCINOLONE [Suspect]
     Active Substance: TRIAMCINOLONE
     Indication: Strabismus
     Route: 065

REACTIONS (2)
  - Drug ineffective [Unknown]
  - Lipoatrophy [Recovered/Resolved]
